FAERS Safety Report 20470916 (Version 1)
Quarter: 2022Q1

REPORT INFORMATION
  Report Type: Report from Study
  Country: US (occurrence: US)
  Receive Date: 20220214
  Receipt Date: 20220214
  Transmission Date: 20220424
  Serious: No
  Sender: FDA-Public Use
  Company Number: US-NOVARTISTESTPH-NVSC2022US033459

PATIENT
  Age: 59 Year
  Sex: Male

DRUGS (1)
  1. ENTRESTO [Suspect]
     Active Substance: SACUBITRIL\VALSARTAN
     Indication: Cardiac failure
     Dosage: (49/51 MG), BID
     Route: 048
     Dates: start: 20211211

REACTIONS (2)
  - COVID-19 [Recovering/Resolving]
  - Throat clearing [Recovering/Resolving]

NARRATIVE: CASE EVENT DATE: 20211231
